FAERS Safety Report 8193831-6 (Version None)
Quarter: 2012Q1

REPORT INFORMATION
  Report Type: 
  Country: None (occurrence: None)
  Receive Date: 20120308
  Receipt Date: 20120229
  Transmission Date: 20120608
  Serious: Yes (Other)
  Sender: FDA-Public Use
  Company Number: US-UCBSA-052483

PATIENT
  Sex: Female

DRUGS (1)
  1. KEPPRA [Suspect]
     Dosage: PATIENT HAS BEEN CONSUMING THE DRUG SINCE 6 YEARS.

REACTIONS (3)
  - URTICARIA [None]
  - LIP SWELLING [None]
  - SWELLING FACE [None]
